FAERS Safety Report 7552083-8 (Version None)
Quarter: 2011Q2

REPORT INFORMATION
  Report Type: 
  Country: None (occurrence: None)
  Receive Date: 20110616
  Receipt Date: 20110607
  Transmission Date: 20111010
  Serious: Yes (Other)
  Sender: FDA-Public Use
  Company Number: US-JNJFOC-20110606225

PATIENT

DRUGS (2)
  1. DACOGEN [Suspect]
     Indication: MYELODYSPLASTIC SYNDROME
     Dosage: ON DAYS 1-5 OF A 28 DAY CYCLE
     Route: 042
  2. TRETINOIN [Suspect]
     Indication: MYELODYSPLASTIC SYNDROME
     Dosage: 45-85 MG/M2/DAY ON DAYS 10-19 OF EACH 28 DAY CYCLE
     Route: 065

REACTIONS (1)
  - HYPERBILIRUBINAEMIA [None]
